FAERS Safety Report 12966399 (Version 1)
Quarter: 2016Q4

REPORT INFORMATION
  Report Type: Spontaneous
  Country: US (occurrence: US)
  Receive Date: 20161121
  Receipt Date: 20161121
  Transmission Date: 20170207
  Serious: Yes (Other)
  Sender: FDA-Public Use
  Company Number: None

PATIENT
  Age: 62 Year
  Sex: Male
  Weight: 73.35 kg

DRUGS (1)
  1. CEFTRIAXONE. [Suspect]
     Active Substance: CEFTRIAXONE
     Indication: ARTHRITIS INFECTIVE
     Route: 040
     Dates: start: 20161011, end: 20161118

REACTIONS (2)
  - Feeling abnormal [None]
  - Pruritus [None]

NARRATIVE: CASE EVENT DATE: 20161118
